FAERS Safety Report 10726566 (Version 1)
Quarter: 2015Q1

REPORT INFORMATION
  Report Type: Spontaneous
  Country: US (occurrence: None)
  Receive Date: 20150120
  Receipt Date: 20150120
  Transmission Date: 20150721
  Serious: No
  Sender: FDA-Public Use
  Company Number: None

PATIENT
  Age: 65 Year
  Sex: Female

DRUGS (1)
  1. BOTOX [Suspect]
     Active Substance: ONABOTULINUMTOXINA
     Indication: BLEPHAROSPASM
     Route: 030
     Dates: start: 20141030, end: 20141030

REACTIONS (4)
  - Diplopia [None]
  - Vision blurred [None]
  - Wrong technique in drug usage process [None]
  - Eyelid ptosis [None]

NARRATIVE: CASE EVENT DATE: 20141030
